FAERS Safety Report 17070855 (Version 28)
Quarter: 2022Q3

REPORT INFORMATION
  Report Type: Report from Study
  Country: US (occurrence: US)
  Receive Date: 20191125
  Receipt Date: 20220902
  Transmission Date: 20221027
  Serious: Yes (Hospitalization, Other)
  Sender: FDA-Public Use
  Company Number: US-SHIRE-US201940541

PATIENT
  Sex: Female
  Weight: 73 kg

DRUGS (62)
  1. HUMAN IMMUNOGLOBULIN G [Suspect]
     Active Substance: HUMAN IMMUNOGLOBULIN G
     Indication: Immunodeficiency common variable
     Dosage: 52 GRAM, Q4WEEKS
     Route: 042
     Dates: start: 20190508
  2. HUMAN IMMUNOGLOBULIN G [Suspect]
     Active Substance: HUMAN IMMUNOGLOBULIN G
     Dosage: 52 GRAM, Q4WEEKS
     Route: 042
     Dates: start: 20190509
  3. HUMAN IMMUNOGLOBULIN G [Suspect]
     Active Substance: HUMAN IMMUNOGLOBULIN G
     Dosage: 50 GRAM, Q4WEEKS
     Route: 042
     Dates: start: 20190509
  4. HUMAN IMMUNOGLOBULIN G [Suspect]
     Active Substance: HUMAN IMMUNOGLOBULIN G
     Dosage: 52 GRAM, Q4WEEKS
     Route: 042
     Dates: start: 20190702
  5. ZOFRAN [Concomitant]
     Active Substance: ONDANSETRON HYDROCHLORIDE
     Route: 065
  6. SALEX [SALICYLIC ACID] [Concomitant]
     Route: 065
  7. SENNOSIDES A AND B [Concomitant]
     Active Substance: SENNOSIDES A AND B
     Route: 065
  8. DICLOFENAC SODIUM [Concomitant]
     Active Substance: DICLOFENAC SODIUM
     Route: 065
  9. OMEPRAZOLE [Concomitant]
     Active Substance: OMEPRAZOLE
     Route: 065
  10. TYLENOL [Concomitant]
     Active Substance: ACETAMINOPHEN
     Route: 065
  11. HYDROXYCHLOROQUINE SULFATE [Concomitant]
     Active Substance: HYDROXYCHLOROQUINE SULFATE
     Route: 065
  12. TOBRAMYCIN [Concomitant]
     Active Substance: TOBRAMYCIN
     Route: 065
  13. PREDNISONE [Concomitant]
     Active Substance: PREDNISONE
     Route: 065
  14. ORENCIA [Concomitant]
     Active Substance: ABATACEPT
     Route: 065
  15. LEFLUNOMIDE [Concomitant]
     Active Substance: LEFLUNOMIDE
     Route: 065
  16. NORVASC [Concomitant]
     Active Substance: AMLODIPINE BESYLATE
     Route: 065
  17. SINGULAIR [Concomitant]
     Active Substance: MONTELUKAST SODIUM
     Route: 065
  18. BACTROBAN [Concomitant]
     Active Substance: MUPIROCIN\MUPIROCIN CALCIUM
     Route: 065
  19. CLONIDINE HYDROCHLORIDE [Concomitant]
     Active Substance: CLONIDINE HYDROCHLORIDE
     Route: 065
  20. TEMOVATE [Concomitant]
     Active Substance: CLOBETASOL PROPIONATE
     Route: 065
  21. AMOXICILLIN [Concomitant]
     Active Substance: AMOXICILLIN
     Route: 065
  22. FLUCONAZOLE [Concomitant]
     Active Substance: FLUCONAZOLE
     Route: 065
  23. ALBUTEROL SULFATE [Concomitant]
     Active Substance: ALBUTEROL SULFATE
     Route: 065
  24. ACETAMINOPHEN [Concomitant]
     Active Substance: ACETAMINOPHEN
     Route: 065
  25. DIPHENHYDRAMINE [Concomitant]
     Active Substance: DIPHENHYDRAMINE
     Route: 065
  26. LIDOCAINE [Concomitant]
     Active Substance: LIDOCAINE
     Route: 065
  27. SODIUM CHLORIDE [Concomitant]
     Active Substance: SODIUM CHLORIDE
     Route: 065
  28. EPINEPHRINE [Concomitant]
     Active Substance: EPINEPHRINE
     Route: 065
  29. MUCINEX [Concomitant]
     Active Substance: GUAIFENESIN
     Route: 065
  30. ZARXIO [Concomitant]
     Active Substance: FILGRASTIM-SNDZ
     Route: 065
  31. MOMETASONE FUROATE [Concomitant]
     Active Substance: MOMETASONE FUROATE
     Route: 065
  32. POTASSIUM CHLORIDE [Concomitant]
     Active Substance: POTASSIUM CHLORIDE
     Route: 065
  33. VITAMINS [Concomitant]
     Active Substance: VITAMINS
     Route: 065
  34. GABAPENTIN [Concomitant]
     Active Substance: GABAPENTIN
     Route: 065
  35. METOPROLOL SUCCINATE [Concomitant]
     Active Substance: METOPROLOL SUCCINATE
     Route: 065
  36. HYZAAR [Concomitant]
     Active Substance: HYDROCHLOROTHIAZIDE\LOSARTAN POTASSIUM
     Route: 065
  37. MELATONIN [Concomitant]
     Active Substance: MELATONIN
     Route: 065
  38. LEVOXYL [Concomitant]
     Active Substance: LEVOTHYROXINE SODIUM
     Route: 065
  39. SYMBICORT [Concomitant]
     Active Substance: BUDESONIDE\FORMOTEROL FUMARATE DIHYDRATE
     Route: 065
  40. CYCLOBENZAPRINE HYDROCHLORIDE [Concomitant]
     Active Substance: CYCLOBENZAPRINE HYDROCHLORIDE
     Route: 065
  41. CALCIUM +D [CALCIUM;ERGOCALCIFEROL] [Concomitant]
     Dosage: UNK
     Route: 065
  42. LYSINE [Concomitant]
     Active Substance: LYSINE
     Dosage: UNK
     Route: 065
  43. LORATADINE [Concomitant]
     Active Substance: LORATADINE
     Dosage: UNK
     Route: 065
  44. NORCO [Concomitant]
     Active Substance: ACETAMINOPHEN\HYDROCODONE BITARTRATE
     Dosage: UNK
     Route: 065
  45. ASPIRIN [Concomitant]
     Active Substance: ASPIRIN
     Dosage: UNK
     Route: 065
  46. LIPITOR [Concomitant]
     Active Substance: ATORVASTATIN CALCIUM
     Dosage: UNK
     Route: 065
  47. SODIUM CHLORIDE [Concomitant]
     Active Substance: SODIUM CHLORIDE
     Dosage: UNK
     Route: 065
  48. ACYCLOVIR [Concomitant]
     Active Substance: ACYCLOVIR
     Dosage: UNK
     Route: 065
  49. POTASSIUM CHLORIDE [Concomitant]
     Active Substance: POTASSIUM CHLORIDE
     Dosage: UNK
     Route: 065
  50. AUGMENTIN [Concomitant]
     Active Substance: AMOXICILLIN\CLAVULANATE POTASSIUM
     Dosage: UNK
     Route: 065
  51. TYLENOL WITH CODEINE [Concomitant]
     Active Substance: ACETAMINOPHEN\CODEINE PHOSPHATE
     Dosage: UNK
     Route: 065
  52. CLOBETASOL PROPIONATE [Concomitant]
     Active Substance: CLOBETASOL PROPIONATE
  53. FLUTICASONE PROPIONATE [Concomitant]
     Active Substance: FLUTICASONE PROPIONATE
  54. LEVOTHYROXINE [Concomitant]
     Active Substance: LEVOTHYROXINE
  55. BIOTIN [Concomitant]
     Active Substance: BIOTIN
  56. NEILMED SINUS RINSE [Concomitant]
     Active Substance: SODIUM BICARBONATE\SODIUM CHLORIDE
  57. HYDROCHLOROTHIAZIDE [Concomitant]
     Active Substance: HYDROCHLOROTHIAZIDE
  58. VITAMIN D3 [Concomitant]
     Active Substance: CHOLECALCIFEROL
  59. KINERET [Concomitant]
     Active Substance: ANAKINRA
  60. MEROPENEM [Concomitant]
     Active Substance: MEROPENEM
  61. SODIUM CHLORIDE [Concomitant]
     Active Substance: SODIUM CHLORIDE
  62. ALBUTEROL SULFATE [Concomitant]
     Active Substance: ALBUTEROL SULFATE

REACTIONS (31)
  - Spinal fusion surgery [Unknown]
  - Pseudomonas infection [Unknown]
  - Pneumonia pseudomonal [Unknown]
  - Pneumonia [Unknown]
  - Lower respiratory tract infection bacterial [Unknown]
  - Renal impairment [Unknown]
  - Foot deformity [Unknown]
  - Infusion related reaction [Unknown]
  - Headache [Recovered/Resolved]
  - Bronchitis [Unknown]
  - Herpes zoster [Unknown]
  - Fluid retention [Unknown]
  - Sinusitis [Unknown]
  - Laryngitis [Unknown]
  - Hypervolaemia [Unknown]
  - Fall [Unknown]
  - Haematoma [Unknown]
  - Contusion [Unknown]
  - Balance disorder [Unknown]
  - Back pain [Unknown]
  - Anaemia [Unknown]
  - Arterial disorder [Unknown]
  - Pyrexia [Unknown]
  - Depressed mood [Unknown]
  - Abdominal pain [Unknown]
  - Illness [Unknown]
  - Head injury [Unknown]
  - Muscular weakness [Unknown]
  - Infection [Unknown]
  - Stress [Unknown]
  - Inappropriate schedule of product administration [Unknown]
